FAERS Safety Report 9893401 (Version 2)
Quarter: 2014Q2

REPORT INFORMATION
  Report Type: Spontaneous
  Country: US (occurrence: US)
  Receive Date: 20140213
  Receipt Date: 20140521
  Transmission Date: 20141212
  Serious: Yes (Death, Disabling, Other)
  Sender: FDA-Public Use
  Company Number: US-009507513-1402USA004434

PATIENT
  Sex: Male
  Weight: 90.7 kg

DRUGS (5)
  1. JANUVIA [Suspect]
     Indication: TYPE 2 DIABETES MELLITUS
     Dosage: 100 MG, QD
     Route: 048
     Dates: start: 20110324, end: 20110702
  2. GLYBURIDE (+) METFORMIN HYDROCHLORIDE [Concomitant]
     Indication: TYPE 2 DIABETES MELLITUS
     Dosage: 2.5 MG/ 500 MG, UNK
  3. GLIMEPIRIDE [Concomitant]
     Indication: TYPE 2 DIABETES MELLITUS
     Dosage: 4 MG, UNK
  4. LISINOPRIL [Concomitant]
     Indication: HYPERTENSION
     Dosage: UNK
     Dates: start: 20101130, end: 20110604
  5. SIMVASTATIN [Concomitant]
     Indication: HYPERLIPIDAEMIA
     Dosage: UNK
     Dates: start: 20101227, end: 20110604

REACTIONS (7)
  - Pancreatic carcinoma [Fatal]
  - Cardio-respiratory arrest [Fatal]
  - Cholelithiasis [Unknown]
  - Bile duct stent insertion [Unknown]
  - Fluid retention [Unknown]
  - Pulmonary mass [Unknown]
  - Nausea [Unknown]
